FAERS Safety Report 21609399 (Version 1)
Quarter: 2022Q4

REPORT INFORMATION
  Report Type: Spontaneous
  Country: CA (occurrence: CA)
  Receive Date: 20221117
  Receipt Date: 20221117
  Transmission Date: 20230113
  Serious: Yes (Life-Threatening, Hospitalization)
  Sender: FDA-Public Use
  Company Number: CA-PFIZER INC-202201306470

PATIENT
  Age: 9 Year
  Sex: Male

DRUGS (8)
  1. CYTARABINE [Suspect]
     Active Substance: CYTARABINE
     Indication: Acute lymphocytic leukaemia
     Dosage: 4000 MG, 2X/DAY
     Route: 042
  2. CASPOFUNGIN [Concomitant]
     Active Substance: CASPOFUNGIN
  3. GABAPENTIN [Concomitant]
     Active Substance: GABAPENTIN
  4. HYDROCORTISONE [Concomitant]
     Active Substance: HYDROCORTISONE
  5. LEVOFLOXACIN [Concomitant]
     Active Substance: LEVOFLOXACIN
  6. METHOTREXATE [Concomitant]
     Active Substance: METHOTREXATE
     Route: 037
  7. PREDNISOLONE [Concomitant]
     Active Substance: PREDNISOLONE
  8. SEPTRA [Concomitant]
     Active Substance: SULFAMETHOXAZOLE\TRIMETHOPRIM

REACTIONS (1)
  - Febrile neutropenia [Recovered/Resolved]
